FAERS Safety Report 9176777 (Version 2)
Quarter: 2013Q3

REPORT INFORMATION
  Report Type: Spontaneous
  Country: FR (occurrence: FR)
  Receive Date: 20130321
  Receipt Date: 20130823
  Transmission Date: 20140515
  Serious: Yes (Disabling)
  Sender: FDA-Public Use
  Company Number: FR-PFIZER INC-2013088702

PATIENT
  Age: 70 Year
  Sex: Female

DRUGS (5)
  1. FARMORUBICINE [Suspect]
     Indication: BREAST CANCER
     Dosage: 240 MG/M2, UNK
     Route: 042
     Dates: start: 1998
  2. FARMORUBICINE [Suspect]
     Dosage: 300 MG/M2, UNK
     Route: 042
     Dates: start: 2006
  3. ENDOXAN [Concomitant]
     Indication: BREAST CANCER
  4. TAXOTERE [Concomitant]
     Indication: BREAST CANCER
  5. FLUOROURACIL [Concomitant]
     Indication: BREAST CANCER

REACTIONS (3)
  - Cardiac failure [Recovered/Resolved with Sequelae]
  - Stroke volume decreased [Recovered/Resolved with Sequelae]
  - Lung disorder [Recovered/Resolved with Sequelae]
